FAERS Safety Report 16866833 (Version 1)
Quarter: 2019Q3

REPORT INFORMATION
  Report Type: Spontaneous
  Country: DE (occurrence: DE)
  Receive Date: 20190930
  Receipt Date: 20190930
  Transmission Date: 20191005
  Serious: Yes (Other)
  Sender: FDA-Public Use
  Company Number: DE-SUN PHARMACEUTICAL INDUSTRIES LTD-2019RR-222195

PATIENT
  Age: 1 Day
  Sex: Male
  Weight: 4.46 kg

DRUGS (2)
  1. QUETIAPINE. [Suspect]
     Active Substance: QUETIAPINE
     Indication: BIPOLAR DISORDER
     Dosage: 400 [MG/D (200-0-200) ] 2 SEPARATED DOSES
     Route: 064
     Dates: start: 20180322, end: 20181219
  2. SERTRALINE [Suspect]
     Active Substance: SERTRALINE HYDROCHLORIDE
     Indication: BIPOLAR DISORDER
     Dosage: 100 [MG/D (BIS 50) ]
     Route: 064
     Dates: start: 20180322, end: 20181219

REACTIONS (3)
  - Hypotonia neonatal [Recovered/Resolved]
  - Large for dates baby [Unknown]
  - Respiratory disorder neonatal [Recovered/Resolved]

NARRATIVE: CASE EVENT DATE: 20181219
